FAERS Safety Report 23443003 (Version 3)
Quarter: 2024Q1

REPORT INFORMATION
  Report Type: Spontaneous
  Country: US (occurrence: US)
  Receive Date: 20240125
  Receipt Date: 20240326
  Transmission Date: 20240410
  Serious: No
  Sender: FDA-Public Use
  Company Number: US-PFIZER INC-PV202400010757

PATIENT
  Age: 34 Year
  Sex: Female

DRUGS (1)
  1. XELJANZ XR [Suspect]
     Active Substance: TOFACITINIB CITRATE
     Dosage: UNK
     Dates: start: 20240102

REACTIONS (11)
  - Headache [Unknown]
  - Oropharyngeal pain [Unknown]
  - Diarrhoea [Unknown]
  - COVID-19 [Unknown]
  - Disease recurrence [Unknown]
  - Illness [Unknown]
  - Infection [Unknown]
  - Musculoskeletal disorder [Unknown]
  - Ill-defined disorder [Unknown]
  - Arthropathy [Unknown]
  - Arthritis [Unknown]
